FAERS Safety Report 16731522 (Version 2)
Quarter: 2019Q3

REPORT INFORMATION
  Report Type: Spontaneous
  Country: US (occurrence: US)
  Receive Date: 20190822
  Receipt Date: 20190927
  Transmission Date: 20191005
  Serious: No
  Sender: FDA-Public Use
  Company Number: US-SA-2019SA226176

PATIENT
  Age: 66 Year
  Sex: Female
  Weight: 65.7 kg

DRUGS (1)
  1. LOVENOX [Suspect]
     Active Substance: ENOXAPARIN SODIUM
     Indication: ANTICOAGULANT THERAPY
     Dosage: 40 MG, QD (ROUTE INJECTION)
     Dates: start: 20190720, end: 20190812

REACTIONS (3)
  - Injection site haematoma [Not Recovered/Not Resolved]
  - Injection site pain [Recovering/Resolving]
  - Drug ineffective [Unknown]
